FAERS Safety Report 12962113 (Version 4)
Quarter: 2017Q2

REPORT INFORMATION
  Report Type: Spontaneous
  Country: JP (occurrence: JP)
  Receive Date: 20161121
  Receipt Date: 20170404
  Transmission Date: 20170830
  Serious: Yes (Other)
  Sender: FDA-Public Use
  Company Number: JP-GILEAD-2016-0243950

PATIENT
  Age: 28 Year
  Sex: Male

DRUGS (4)
  1. PASETOCIN [Concomitant]
     Active Substance: AMOXICILLIN
     Indication: SYPHILIS
     Route: 048
     Dates: start: 20160623, end: 20160916
  2. GENVOYA [Suspect]
     Active Substance: COBICISTAT\ELVITEGRAVIR\EMTRICITABINE\TENOFOVIR ALAFENAMIDE FUMARATE
     Indication: HIV INFECTION
     Dosage: 1 DF, QD
     Route: 048
     Dates: start: 20160910, end: 20161108
  3. ACUATIM [Concomitant]
     Active Substance: NADIFLOXACIN
     Indication: ECZEMA
     Route: 062
     Dates: start: 20100915, end: 20161015
  4. ACUATIM [Concomitant]
     Active Substance: NADIFLOXACIN
     Route: 062
     Dates: start: 20160915, end: 20161015

REACTIONS (2)
  - Immune reconstitution inflammatory syndrome [Recovered/Resolved]
  - Hepatitis B [Recovered/Resolved]

NARRATIVE: CASE EVENT DATE: 20161011
